FAERS Safety Report 9136872 (Version 1)
Quarter: 2013Q1

REPORT INFORMATION
  Report Type: Spontaneous
  Country: US (occurrence: US)
  Receive Date: 20130304
  Receipt Date: 20130304
  Transmission Date: 20140127
  Serious: No
  Sender: FDA-Public Use
  Company Number: US-ABBOTT-12P-163-0963577-00

PATIENT
  Sex: Male
  Weight: 90.8 kg

DRUGS (4)
  1. ANDROGEL 1% [Suspect]
     Indication: BLOOD TESTOSTERONE DECREASED
     Dosage: ONE PACKET PER DAY
     Dates: start: 2007
  2. ANDROGEL 1% [Suspect]
     Dosage: ONE PACKET THREE DAYS PER WEEK
  3. NEXIUM [Concomitant]
     Indication: GASTROOESOPHAGEAL REFLUX DISEASE
  4. TRICOR [Concomitant]
     Indication: PROPHYLAXIS
     Dates: start: 2010

REACTIONS (7)
  - Weight fluctuation [Unknown]
  - Weight increased [Unknown]
  - Rash macular [Unknown]
  - Joint swelling [Unknown]
  - Glucose tolerance impaired [Unknown]
  - Drug administered at inappropriate site [Unknown]
  - Joint swelling [Recovered/Resolved]
